FAERS Safety Report 24050281 (Version 1)
Quarter: 2024Q3

REPORT INFORMATION
  Report Type: Spontaneous
  Country: US (occurrence: US)
  Receive Date: 20240704
  Receipt Date: 20240704
  Transmission Date: 20241017
  Serious: Yes (Other)
  Sender: AUROBINDO
  Company Number: US-AUROBINDO-AUR-APL-2024-032406

PATIENT
  Age: 64 Year
  Sex: Male

DRUGS (3)
  1. PREDNISONE [Suspect]
     Active Substance: PREDNISONE
     Indication: Bronchopulmonary aspergillosis allergic
     Dosage: UNK
     Route: 048
  2. PREDNISONE [Suspect]
     Active Substance: PREDNISONE
     Dosage: 10 MILLIGRAM, ONCE A DAY (REDUCED TO 10 MG/DAY)
     Route: 048
  3. PREDNISONE [Suspect]
     Active Substance: PREDNISONE
     Dosage: 1 MILLIGRAM, EVERY MONTH (TAPERED TO 1MG PER MONTH)
     Route: 048

REACTIONS (3)
  - Adrenal insufficiency [Unknown]
  - Cushing^s syndrome [Unknown]
  - Osteoporosis [Unknown]
